FAERS Safety Report 12426050 (Version 1)
Quarter: 2016Q2

REPORT INFORMATION
  Report Type: Spontaneous
  Country: ES (occurrence: ES)
  Receive Date: 20160601
  Receipt Date: 20160601
  Transmission Date: 20160815
  Serious: Yes (Other)
  Sender: FDA-Public Use
  Company Number: ES-MYLANLABS-2016M1022584

PATIENT

DRUGS (1)
  1. BROMOCRIPTINE [Suspect]
     Active Substance: BROMOCRIPTINE
     Indication: CEREBELLAR MUTISM
     Dosage: UNK
     Route: 065

REACTIONS (1)
  - Posterior reversible encephalopathy syndrome [Recovered/Resolved]
